FAERS Safety Report 25155564 (Version 1)
Quarter: 2025Q2

REPORT INFORMATION
  Report Type: Spontaneous
  Country: US (occurrence: US)
  Receive Date: 20250403
  Receipt Date: 20250403
  Transmission Date: 20250716
  Serious: Yes (Hospitalization)
  Sender: TEVA
  Company Number: US-TEVA-VS-3313592

PATIENT
  Age: 61 Year
  Sex: Male
  Weight: 72.575 kg

DRUGS (1)
  1. ALBUTEROL SULFATE [Suspect]
     Active Substance: ALBUTEROL SULFATE
     Indication: Hypervolaemia
     Route: 065

REACTIONS (3)
  - Pneumonia [Recovered/Resolved]
  - Product knowledge deficit [Unknown]
  - Wrong technique in device usage process [Unknown]
